FAERS Safety Report 26137181 (Version 1)
Quarter: 2025Q4

REPORT INFORMATION
  Report Type: Spontaneous
  Country: CA (occurrence: CA)
  Receive Date: 20251209
  Receipt Date: 20251209
  Transmission Date: 20260118
  Serious: Yes (Other)
  Sender: NOVO NORDISK
  Company Number: CA-NOVOPROD-1577615

PATIENT
  Age: 60 Year

DRUGS (1)
  1. SAXENDA [Suspect]
     Active Substance: LIRAGLUTIDE
     Indication: Glucose tolerance impaired
     Dosage: UNK

REACTIONS (3)
  - Gastric banding [Unknown]
  - Sleeve gastrectomy [Unknown]
  - Off label use [Unknown]
